FAERS Safety Report 5566923-5 (Version None)
Quarter: 2007Q4

REPORT INFORMATION
  Report Type: 
  Country: None (occurrence: None)
  Receive Date: 20071219
  Receipt Date: 20070319
  Transmission Date: 20080405
  Serious: No
  Sender: FDA-Public Use
  Company Number: US-BRISTOL-MYERS SQUIBB COMPANY-13696026

PATIENT
  Age: 68 Year
  Sex: Female
  Weight: 68 kg

DRUGS (5)
  1. PRAVACHOL [Suspect]
  2. ATIVAN [Concomitant]
  3. TOPROL-XL [Concomitant]
  4. HYDROCHLOROTHIAZIDE [Concomitant]
  5. NORVASC [Concomitant]

REACTIONS (5)
  - DYSPNOEA [None]
  - EAR CONGESTION [None]
  - HEADACHE [None]
  - NAUSEA [None]
  - VOMITING [None]
